FAERS Safety Report 25466521 (Version 1)
Quarter: 2025Q2

REPORT INFORMATION
  Report Type: Report from Study
  Country: IE (occurrence: IE)
  Receive Date: 20250623
  Receipt Date: 20250623
  Transmission Date: 20250717
  Serious: Yes (Hospitalization, Other)
  Sender: TAKEDA
  Company Number: IE-TAKEDA-2025TUS040224

PATIENT
  Age: 55 Year
  Sex: Female

DRUGS (10)
  1. HUMAN IMMUNOGLOBULIN G\HYALURONIDASE RECOMBINANT HUMAN [Suspect]
     Active Substance: HUMAN IMMUNOGLOBULIN G\HYALURONIDASE (HUMAN RECOMBINANT)
     Indication: Hypogammaglobulinaemia
  2. HUMAN IMMUNOGLOBULIN G\HYALURONIDASE RECOMBINANT HUMAN [Suspect]
     Active Substance: HUMAN IMMUNOGLOBULIN G\HYALURONIDASE (HUMAN RECOMBINANT)
  3. PREDNISOLONE [Concomitant]
     Active Substance: PREDNISOLONE
  4. EMEND [Concomitant]
     Active Substance: APREPITANT
  5. CYCLIZINE [Concomitant]
     Active Substance: CYCLIZINE
  6. ALLOPURINOL [Concomitant]
     Active Substance: ALLOPURINOL
  7. SULFAMETHOXAZOLE\TRIMETHOPRIM [Concomitant]
     Active Substance: SULFAMETHOXAZOLE\TRIMETHOPRIM
  8. OMEPRAZOLE [Concomitant]
     Active Substance: OMEPRAZOLE
  9. Sertral [Concomitant]
     Dosage: 50 MILLIGRAM, QD
  10. FAMVIR [Concomitant]
     Active Substance: FAMCICLOVIR
     Dosage: 500 MILLIGRAM, BID

REACTIONS (5)
  - Pneumonia [Unknown]
  - Herpes zoster [Unknown]
  - Infusion site pruritus [Recovered/Resolved]
  - Infusion site erythema [Unknown]
  - Headache [Unknown]

NARRATIVE: CASE EVENT DATE: 20250418
